FAERS Safety Report 21447670 (Version 2)
Quarter: 2022Q4

REPORT INFORMATION
  Report Type: Report from Study
  Country: JP (occurrence: JP)
  Receive Date: 20221012
  Receipt Date: 20221213
  Transmission Date: 20230112
  Serious: Yes (Hospitalization)
  Sender: FDA-Public Use
  Company Number: JP-TAKEDA-2021TJP111606

PATIENT
  Age: 74 Year
  Sex: Male

DRUGS (4)
  1. LEUPROLIDE ACETATE [Suspect]
     Active Substance: LEUPROLIDE ACETATE
     Indication: Product used for unknown indication
     Dosage: 11.25 MILLIGRAM, Q3MONTHS
     Route: 058
     Dates: start: 20200630
  2. LANSOPRAZOLE [Concomitant]
     Active Substance: LANSOPRAZOLE
     Indication: Product used for unknown indication
     Dosage: 15 MILLIGRAM
     Route: 065
  3. CARBOCISTEINE CO [Concomitant]
     Indication: Bulbospinal muscular atrophy congenital
     Dosage: 750 MILLIGRAM
     Route: 065
     Dates: start: 20200630
  4. IRBESARTANA [Concomitant]
     Indication: Product used for unknown indication
     Dosage: 50 MILLIGRAM
     Route: 065
     Dates: start: 20200630

REACTIONS (2)
  - Bulbospinal muscular atrophy congenital [Unknown]
  - Hospitalisation [Unknown]
